FAERS Safety Report 10244090 (Version 3)
Quarter: 2014Q3

REPORT INFORMATION
  Report Type: Spontaneous
  Country: JP (occurrence: JP)
  Receive Date: 20140618
  Receipt Date: 20140807
  Transmission Date: 20150326
  Serious: Yes (Hospitalization, Other)
  Sender: FDA-Public Use
  Company Number: JP-PFIZER INC-2014167569

PATIENT
  Age: 80 Year
  Sex: Male

DRUGS (1)
  1. SOLU-MEDROL [Suspect]
     Active Substance: METHYLPREDNISOLONE SODIUM SUCCINATE
     Indication: PULMONARY ALVEOLAR HAEMORRHAGE
     Dosage: 1 MG/KG, FOR 2 WEEKS AND TAPERED
     Route: 042

REACTIONS (4)
  - Condition aggravated [Recovered/Resolved]
  - Hyperglycaemia [Recovered/Resolved]
  - Osteomyelitis [Recovered/Resolved]
  - Atypical mycobacterial infection [Unknown]
